FAERS Safety Report 7501461-1 (Version None)
Quarter: 2011Q2

REPORT INFORMATION
  Report Type: 
  Country: None (occurrence: None)
  Receive Date: 20110524
  Receipt Date: 20090416
  Transmission Date: 20111010
  Serious: Yes (Hospitalization, Other)
  Sender: FDA-Public Use
  Company Number: US-BAYER-200918352NA

PATIENT
  Age: 56 Year
  Sex: Male
  Weight: 90 kg

DRUGS (11)
  1. TRASYLOL [Suspect]
     Indication: AORTIC BYPASS
     Dosage: INITAL DOSE 1ML, 200 ML PUMP PRIME. LOADING DOSE 200 CC THEN INFUSION OF 50CC/HR
     Route: 042
     Dates: start: 20060422, end: 20060422
  2. PROTAMINE SULFATE [Concomitant]
     Dosage: UNK
     Route: 042
     Dates: start: 20060422
  3. HEPARIN [Concomitant]
     Dosage: 5000 UNITS
     Route: 042
     Dates: start: 20060422
  4. NIPRIDE [Concomitant]
     Dosage: UNK
     Route: 042
     Dates: start: 20060422
  5. LOTREL [Concomitant]
  6. FENTANYL [Concomitant]
     Dosage: UNK
     Route: 042
     Dates: start: 20060422
  7. PLASMA [Concomitant]
     Dosage: UNK
     Dates: start: 20060523
  8. RED BLOOD CELLS [Concomitant]
     Dosage: UNK
     Dates: start: 20060422
  9. WARFARIN SODIUM [Concomitant]
     Dosage: UNK
     Dates: start: 20021111
  10. TRASYLOL [Suspect]
     Indication: AORTIC VALVE REPAIR
  11. MANNITOL [Concomitant]
     Dosage: UNK
     Route: 042
     Dates: start: 20060422

REACTIONS (5)
  - INJURY [None]
  - PAIN [None]
  - RENAL FAILURE [None]
  - UNEVALUABLE EVENT [None]
  - RENAL FAILURE ACUTE [None]
